FAERS Safety Report 16091344 (Version 4)
Quarter: 2019Q2

REPORT INFORMATION
  Report Type: Spontaneous
  Country: ZA (occurrence: ZA)
  Receive Date: 20190319
  Receipt Date: 20190524
  Transmission Date: 20190711
  Serious: Yes (Hospitalization, Other)
  Sender: FDA-Public Use
  Company Number: ZA-ASTRAZENECA-2019SE41099

PATIENT
  Age: 64 Year
  Sex: Male
  Weight: 70 kg

DRUGS (11)
  1. ACTRAPHANE [Concomitant]
     Active Substance: INSULIN HUMAN
     Dosage: 60 IU TWO TIMES A DAY
  2. ASPAVOR [Concomitant]
     Active Substance: ATORVASTATIN
  3. FUROSEMIDE. [Concomitant]
     Active Substance: FUROSEMIDE
  4. DAPAGLIFLOZIN. [Suspect]
     Active Substance: DAPAGLIFLOZIN
     Dosage: DAPAGLAIFLOZIN (TRIAL MEDICATION) UNKNOWN
     Route: 048
  5. EUTHYROX [Concomitant]
     Active Substance: LEVOTHYROXINE SODIUM
  6. SINEMET [Concomitant]
     Active Substance: CARBIDOPA\LEVODOPA
  7. DAPAGLIFLOZIN. [Suspect]
     Active Substance: DAPAGLIFLOZIN
     Dosage: UNKNOWN
     Route: 048
  8. GLUCOPHAGE [Concomitant]
     Active Substance: METFORMIN HYDROCHLORIDE
  9. SAXAGLIPTIN [Suspect]
     Active Substance: SAXAGLIPTIN
     Dosage: UNKNOWN
     Route: 048
  10. NEXIAM [Concomitant]
     Active Substance: ESOMEPRAZOLE
  11. TAREG [Concomitant]
     Active Substance: VALSARTAN

REACTIONS (11)
  - Urinary tract infection [Unknown]
  - Haematuria [Recovered/Resolved]
  - Diarrhoea [Unknown]
  - Splenomegaly [Unknown]
  - Renal failure [Unknown]
  - Abdominal pain lower [Recovered/Resolved]
  - Abdominal pain upper [Not Recovered/Not Resolved]
  - Hypersplenism [Unknown]
  - Bladder transitional cell carcinoma [Unknown]
  - Cystitis haemorrhagic [Unknown]
  - Pancytopenia [Unknown]

NARRATIVE: CASE EVENT DATE: 2014
